FAERS Safety Report 18747240 (Version 4)
Quarter: 2021Q2

REPORT INFORMATION
  Report Type: Spontaneous
  Country: JP (occurrence: JP)
  Receive Date: 20210115
  Receipt Date: 20210402
  Transmission Date: 20210717
  Serious: Yes (Other)
  Sender: FDA-Public Use
  Company Number: JP-JNJFOC-20210112480

PATIENT
  Sex: Male

DRUGS (5)
  1. AMLODIPINE [Concomitant]
     Active Substance: AMLODIPINE BESYLATE
  2. TREMFYA [Suspect]
     Active Substance: GUSELKUMAB
  3. FEBURIC [Concomitant]
     Active Substance: FEBUXOSTAT
  4. TREMFYA [Suspect]
     Active Substance: GUSELKUMAB
     Indication: PRODUCT USED FOR UNKNOWN INDICATION
     Dosage: RECEIVED LATEST DOSE ON 02?FEB?2021
     Route: 058
     Dates: start: 20181002
  5. TREMFYA [Suspect]
     Active Substance: GUSELKUMAB

REACTIONS (1)
  - Diverticulitis [Recovered/Resolved]

NARRATIVE: CASE EVENT DATE: 20210105
